FAERS Safety Report 7819322-7 (Version None)
Quarter: 2011Q4

REPORT INFORMATION
  Report Type: 
  Country: None (occurrence: None)
  Receive Date: 20111018
  Receipt Date: 20110202
  Transmission Date: 20120403
  Serious: No
  Sender: FDA-Public Use
  Company Number: US-ASTRAZENECA-2011SE00459

PATIENT
  Age: 64 Year
  Sex: Female
  Weight: 56.2 kg

DRUGS (6)
  1. SINGULAIR [Concomitant]
  2. AZOR [Concomitant]
     Indication: HYPERTENSION
  3. SIMVASTATIN [Concomitant]
  4. ALBUTEROL [Concomitant]
  5. SYMBICORT [Suspect]
     Dosage: 320 MCGS BID
     Route: 055
     Dates: start: 20080101
  6. PRAMIPEXOLE DIHYDROCHLORIDE [Concomitant]
     Indication: RESTLESS LEGS SYNDROME

REACTIONS (4)
  - COUGH [None]
  - RETCHING [None]
  - DRUG INEFFECTIVE [None]
  - INHALATION THERAPY [None]
